FAERS Safety Report 9511777 (Version 2)
Quarter: 2013Q3

REPORT INFORMATION
  Report Type: Spontaneous
  Country: JP (occurrence: JP)
  Receive Date: 20130910
  Receipt Date: 20130910
  Transmission Date: 20140515
  Serious: Yes (Other)
  Sender: FDA-Public Use
  Company Number: JP-ELI_LILLY_AND_COMPANY-JP201305001697

PATIENT
  Age: 83 Year
  Sex: Female
  Weight: 47 kg

DRUGS (11)
  1. FORTEO [Suspect]
     Indication: OSTEOPOROSIS
     Dosage: UNK
     Route: 058
     Dates: start: 20130213
  2. WARFARIN [Suspect]
     Dosage: 2 MG, UNK
     Route: 048
     Dates: end: 20130416
  3. ARTIST [Concomitant]
     Dosage: UNK
  4. EUGLUCON [Concomitant]
     Dosage: UNK
  5. GLUCOBAY [Concomitant]
     Dosage: UNK
  6. BLOPRESS [Concomitant]
  7. CRESTOR [Concomitant]
  8. LENDORMIN [Concomitant]
  9. NEUROTROPIN [Concomitant]
     Dosage: UNK
     Route: 048
     Dates: start: 20130131, end: 20130416
  10. MYONAL [Concomitant]
     Dosage: UNK
     Route: 048
     Dates: start: 20130131, end: 20130416
  11. MARZULENE S [Concomitant]
     Dosage: 2.0 G, QD
     Route: 048
     Dates: start: 20130131, end: 20130416

REACTIONS (1)
  - Prothrombin time prolonged [Recovered/Resolved]
